FAERS Safety Report 5712581-6 (Version None)
Quarter: 2008Q2

REPORT INFORMATION
  Report Type: 
  Country: None (occurrence: None)
  Receive Date: 20080422
  Receipt Date: 20080411
  Transmission Date: 20081010
  Serious: Yes (Death)
  Sender: FDA-Public Use
  Company Number: JP-ELI_LILLY_AND_COMPANY-JP200804002982

PATIENT
  Sex: Female

DRUGS (1)
  1. GEMZAR [Suspect]
     Indication: GALLBLADDER CANCER
     Dosage: 1400 MG, OTHER
     Dates: start: 20080313, end: 20080313

REACTIONS (2)
  - DISSEMINATED INTRAVASCULAR COAGULATION [None]
  - THROMBOCYTOPENIA [None]
